FAERS Safety Report 21307257 (Version 3)
Quarter: 2022Q4

REPORT INFORMATION
  Report Type: Report from Study
  Country: IN (occurrence: IN)
  Receive Date: 20220908
  Receipt Date: 20221123
  Transmission Date: 20230113
  Serious: Yes (Other)
  Sender: FDA-Public Use
  Company Number: IN-NOVARTISPH-NVSC2022IN201299

PATIENT
  Age: 41 Year
  Sex: Male

DRUGS (2)
  1. CERTICAN [Suspect]
     Active Substance: EVEROLIMUS
     Indication: Renal transplant
     Dosage: 0.25 MG, UNKNOWN
     Route: 048
  2. CERTICAN [Suspect]
     Active Substance: EVEROLIMUS
     Dosage: 0.25 MG, UNKNOWN
     Route: 048
     Dates: start: 20220825

REACTIONS (2)
  - Kidney transplant rejection [Unknown]
  - Complications of transplanted kidney [Unknown]

NARRATIVE: CASE EVENT DATE: 20220824
